FAERS Safety Report 15796952 (Version 1)
Quarter: 2019Q1

REPORT INFORMATION
  Report Type: Spontaneous
  Country: US (occurrence: US)
  Receive Date: 20190107
  Receipt Date: 20190107
  Transmission Date: 20190417
  Serious: Yes (Other)
  Sender: FDA-Public Use
  Company Number: None

PATIENT
  Age: 68 Year
  Sex: Female
  Weight: 80.1 kg

DRUGS (4)
  1. DILTIAZEM CD [Concomitant]
     Active Substance: DILTIAZEM
  2. VITAMIN D [Concomitant]
     Active Substance: CHOLECALCIFEROL
  3. PROBIOTICS [Concomitant]
     Active Substance: PROBIOTICS NOS
  4. LEVOTHYROXINE .112MG TABS [Suspect]
     Active Substance: LEVOTHYROXINE
     Indication: THYROIDECTOMY
     Dosage: ?          QUANTITY:1 TABLET(S);?
     Route: 048
     Dates: start: 20190105, end: 20190107

REACTIONS (4)
  - Swollen tongue [None]
  - Product substitution issue [None]
  - Feeling abnormal [None]
  - Product supply issue [None]

NARRATIVE: CASE EVENT DATE: 20190106
